FAERS Safety Report 7393818-7 (Version None)
Quarter: 2011Q2

REPORT INFORMATION
  Report Type: 
  Country: None (occurrence: None)
  Receive Date: 20110405
  Receipt Date: 20110321
  Transmission Date: 20111010
  Serious: Yes (Hospitalization)
  Sender: FDA-Public Use
  Company Number: US-EISAI INC-E7389-00779-CLI-US

PATIENT
  Sex: Male
  Weight: 71 kg

DRUGS (6)
  1. LOTREL [Concomitant]
  2. ARANESP [Concomitant]
  3. TRELSTAR [Concomitant]
  4. E7389 (BOLD) [Suspect]
     Indication: PROSTATE CANCER
     Route: 041
     Dates: start: 20090305, end: 20090514
  5. ASPIRIN [Concomitant]
  6. ELIGARD [Concomitant]

REACTIONS (3)
  - URINARY TRACT INFECTION [None]
  - PERIPHERAL MOTOR NEUROPATHY [None]
  - HYPOTENSION [None]
